FAERS Safety Report 21619927 (Version 1)
Quarter: 2022Q4

REPORT INFORMATION
  Report Type: Spontaneous
  Country: JP (occurrence: JP)
  Receive Date: 20221121
  Receipt Date: 20221121
  Transmission Date: 20230113
  Serious: Yes (Hospitalization, Other)
  Sender: FDA-Public Use
  Company Number: JP-002147023-NVSJ2022JP101016

PATIENT
  Age: 60 Year
  Sex: Male

DRUGS (2)
  1. TASIGNA [Suspect]
     Active Substance: NILOTINIB
     Indication: Chronic myeloid leukaemia
     Dosage: 600 MG
     Route: 048
  2. TASIGNA [Suspect]
     Active Substance: NILOTINIB
     Dosage: 300 MG
     Route: 048

REACTIONS (8)
  - Carotid artery stenosis [Recovered/Resolved]
  - Transient ischaemic attack [Unknown]
  - Cerebral haemorrhage [Recovered/Resolved]
  - Cerebral hyperperfusion syndrome [Unknown]
  - Cerebral infarction [Recovered/Resolved with Sequelae]
  - Seizure [Unknown]
  - Hemiplegia [Unknown]
  - Language disorder [Unknown]
